FAERS Safety Report 23746992 (Version 2)
Quarter: 2024Q3

REPORT INFORMATION
  Report Type: Spontaneous
  Country: CN (occurrence: CN)
  Receive Date: 20240416
  Receipt Date: 20240813
  Transmission Date: 20241016
  Serious: Yes (Hospitalization)
  Sender: BAYER
  Company Number: CN-BAYER-2024A054146

PATIENT
  Age: 67 Year
  Sex: Female
  Weight: 48 kg

DRUGS (3)
  1. GLUCOBAY [Suspect]
     Active Substance: ACARBOSE
     Indication: Diabetes mellitus
     Dosage: 50 MG, TID
     Route: 048
     Dates: start: 20240326, end: 20240401
  2. CEFOTAXIME SODIUM\SULBACTAM SODIUM [Suspect]
     Active Substance: CEFOTAXIME SODIUM\SULBACTAM SODIUM
     Indication: Urinary tract infection
     Dosage: 3 G, BID
     Route: 041
     Dates: start: 20240326, end: 20240401
  3. SODIUM CHLORIDE [Concomitant]
     Active Substance: SODIUM CHLORIDE
     Indication: Vehicle solution use
     Dosage: 100 ML, BID
     Route: 041
     Dates: start: 20240326, end: 20240401

REACTIONS (2)
  - Drug-induced liver injury [Recovering/Resolving]
  - Abdominal pain upper [None]

NARRATIVE: CASE EVENT DATE: 20240401
